FAERS Safety Report 6035354-6 (Version None)
Quarter: 2009Q1

REPORT INFORMATION
  Report Type: 
  Country: None (occurrence: None)
  Receive Date: 20090109
  Receipt Date: 20090109
  Transmission Date: 20090719
  Serious: Yes (Death)
  Sender: FDA-Public Use
  Company Number: None

PATIENT
  Age: 48 Year
  Sex: Female
  Weight: 78.64 kg

DRUGS (16)
  1. RITUXIMAB [Suspect]
     Indication: LYMPHOMA
     Dosage: 375MG
     Dates: start: 20081207
  2. CYCLOPHOSPHAMIDE [Suspect]
     Indication: LYMPHOMA
     Dosage: 750MG/M2
     Dates: start: 20081207
  3. DOXORUBICIN HCL [Suspect]
     Indication: LYMPHOMA
     Dosage: 50MG
     Dates: start: 20081207
  4. VINCRISTINE [Suspect]
     Indication: LYMPHOMA
     Dates: start: 20081207
  5. PREDNISONE [Suspect]
     Dosage: 40 MG/M2 (DAYS 1-4) PO
     Route: 048
     Dates: start: 20081207, end: 20081211
  6. LACTULOSE [Concomitant]
  7. RESTORIL [Concomitant]
  8. FENTAYL PATCH [Concomitant]
  9. DOCUSATE [Concomitant]
  10. MS CONTIN [Concomitant]
  11. NEXIUM [Concomitant]
  12. SIMETHICONE [Concomitant]
  13. LANTUS [Concomitant]
  14. MAGNESIUM CITRATE [Concomitant]
  15. HUMALOG [Concomitant]
  16. NEULASTA [Concomitant]

REACTIONS (15)
  - ACUTE RESPIRATORY FAILURE [None]
  - DIFFERENTIAL WHITE BLOOD CELL COUNT ABNORMAL [None]
  - GENERAL PHYSICAL HEALTH DETERIORATION [None]
  - HAEMATOCRIT DECREASED [None]
  - HAEMOGLOBIN DECREASED [None]
  - LUNG CONSOLIDATION [None]
  - LUNG INFILTRATION [None]
  - LUNG NEOPLASM [None]
  - NEUTROPENIA [None]
  - PLATELET COUNT DECREASED [None]
  - PULSE ABSENT [None]
  - RESPIRATORY ARREST [None]
  - SEPTIC SHOCK [None]
  - UNRESPONSIVE TO STIMULI [None]
  - WHITE BLOOD CELL COUNT DECREASED [None]
